FAERS Safety Report 5722445-X (Version None)
Quarter: 2008Q2

REPORT INFORMATION
  Report Type: 
  Country: None (occurrence: None)
  Receive Date: 20080429
  Receipt Date: 20071213
  Transmission Date: 20081010
  Serious: No
  Sender: FDA-Public Use
  Company Number: US-ASTRAZENECA-2007UW28441

PATIENT
  Sex: Female

DRUGS (2)
  1. NEXIUM [Suspect]
     Indication: GASTROOESOPHAGEAL REFLUX DISEASE
     Route: 048
     Dates: start: 20071101
  2. ASPIRIN [Concomitant]

REACTIONS (4)
  - DRY EYE [None]
  - DRY MOUTH [None]
  - DRY SKIN [None]
  - POLLAKIURIA [None]
